FAERS Safety Report 5413044-8 (Version None)
Quarter: 2007Q3

REPORT INFORMATION
  Report Type: 
  Country: None (occurrence: None)
  Receive Date: 20070813
  Receipt Date: 20070801
  Transmission Date: 20080115
  Serious: Yes (Other)
  Sender: FDA-Public Use
  Company Number: US-PFIZER INC-2007064746

PATIENT
  Sex: Female
  Weight: 56.7 kg

DRUGS (4)
  1. CHANTIX [Suspect]
     Indication: SMOKING CESSATION THERAPY
  2. HYDROCHLOROTHIAZIDE [Concomitant]
     Indication: HYPERTENSION
  3. GEMFIBROZIL [Concomitant]
     Indication: BLOOD CHOLESTEROL
  4. ALL OTHER NON-THERAPEUTIC PRODUCTS [Concomitant]

REACTIONS (6)
  - APPENDICECTOMY [None]
  - CHOLECYSTECTOMY [None]
  - COLECTOMY [None]
  - GASTROINTESTINAL INFECTION [None]
  - NAUSEA [None]
  - TOBACCO USER [None]
